FAERS Safety Report 7869466-9 (Version None)
Quarter: 2011Q4

REPORT INFORMATION
  Report Type: 
  Country: None (occurrence: None)
  Receive Date: 20111027
  Receipt Date: 20100925
  Transmission Date: 20120403
  Serious: Yes (Hospitalization, Other)
  Sender: FDA-Public Use
  Company Number: 2010AP002080

PATIENT
  Age: 39 Year
  Sex: Female

DRUGS (8)
  1. VALPROIC ACID [Suspect]
     Indication: BIPOLAR I DISORDER
     Dosage: 700 MG; QD
  2. LITHIUM CARBONATE [Suspect]
     Indication: BIPOLAR I DISORDER
     Dosage: 600 MG; QD, 450 MG; QD
  3. LEVOTHYROXINE SODIUM [Concomitant]
  4. CLOZAPINE [Suspect]
     Indication: BIPOLAR I DISORDER
     Dosage: 200 MG; 1X, 275 MG; QD, 37.5 MG; QD, 400 MG; QD
  5. DIAZEPAM [Suspect]
     Indication: AGITATION
  6. HALOPERIDOL [Suspect]
     Indication: AGITATION
     Dosage: 7 MG; QD; IM
     Route: 030
  7. HALOPERIDOL [Suspect]
     Indication: AGITATION
     Dosage: 10 MG; PO
     Route: 048
  8. PIPAMPERONE [Suspect]
     Indication: BIPOLAR I DISORDER
     Dosage: 80 MG; QD

REACTIONS (15)
  - TREMOR [None]
  - MUTISM [None]
  - PSYCHOTIC DISORDER [None]
  - IMPULSIVE BEHAVIOUR [None]
  - AGGRESSION [None]
  - NEUROLEPTIC MALIGNANT SYNDROME [None]
  - NEGATIVISM [None]
  - LEUKOCYTOSIS [None]
  - ABDOMINAL DISTENSION [None]
  - BLOOD POTASSIUM DECREASED [None]
  - MYOGLOBIN BLOOD DECREASED [None]
  - AFFECT LABILITY [None]
  - MIDDLE INSOMNIA [None]
  - GASTROINTESTINAL HYPOMOTILITY [None]
  - DELUSION OF REFERENCE [None]
